FAERS Safety Report 18966794 (Version 1)
Quarter: 2021Q1

REPORT INFORMATION
  Report Type: Other
  Country: CH (occurrence: CH)
  Receive Date: 20210303
  Receipt Date: 20210303
  Transmission Date: 20210420
  Serious: Yes (Hospitalization, Disabling, Other)
  Sender: FDA-Public Use
  Company Number: CH-INCYTE CORPORATION-2021IN001813

PATIENT

DRUGS (6)
  1. JAKAVI [Suspect]
     Active Substance: RUXOLITINIB
     Indication: MYELOPROLIFERATIVE NEOPLASM
     Dosage: 15 MG, Q12H
     Route: 048
     Dates: start: 20150423
  2. JAKAVI [Suspect]
     Active Substance: RUXOLITINIB
     Dosage: 5 MG, Q12H
     Route: 048
     Dates: start: 20201218
  3. TOREM [TORASEMIDE] [Concomitant]
     Active Substance: TORSEMIDE
     Indication: PRODUCT USED FOR UNKNOWN INDICATION
     Dosage: 5 MG, Q12H
     Route: 048
  4. ROSUVASTATINE [ROSUVASTATIN] [Concomitant]
     Active Substance: ROSUVASTATIN
     Indication: PRODUCT USED FOR UNKNOWN INDICATION
     Dosage: 10 MG PER DAY
     Route: 048
  5. INDERAL [Concomitant]
     Active Substance: PROPRANOLOL HYDROCHLORIDE
     Indication: PRODUCT USED FOR UNKNOWN INDICATION
     Dosage: 40 MG PER DAY
     Route: 048
  6. PRADIF [Concomitant]
     Active Substance: TAMSULOSIN HYDROCHLORIDE
     Indication: PRODUCT USED FOR UNKNOWN INDICATION
     Dosage: 400 UG PER DAY
     Route: 048

REACTIONS (1)
  - Splenic marginal zone lymphoma [Not Recovered/Not Resolved]

NARRATIVE: CASE EVENT DATE: 20201017
